FAERS Safety Report 9405178 (Version 1)
Quarter: 2013Q3

REPORT INFORMATION
  Report Type: Spontaneous
  Country: AU (occurrence: AU)
  Receive Date: 20130717
  Receipt Date: 20130717
  Transmission Date: 20140515
  Serious: Yes (Other)
  Sender: FDA-Public Use
  Company Number: AU-PFIZER INC-2013206700

PATIENT
  Sex: Female

DRUGS (2)
  1. LYRICA [Suspect]
     Dosage: 50 MG, UNK
  2. LYRICA [Suspect]
     Dosage: 75 MG, 2X/DAY

REACTIONS (14)
  - Cerebrovascular accident [Unknown]
  - Dizziness [Unknown]
  - Fatigue [Unknown]
  - Migraine [Unknown]
  - Headache [Unknown]
  - Feeling abnormal [Unknown]
  - Sleep phase rhythm disturbance [Unknown]
  - Insomnia [Unknown]
  - Pain in extremity [Unknown]
  - Paraesthesia [Unknown]
  - Arthralgia [Unknown]
  - Anxiety [Unknown]
  - Neuralgia [Unknown]
  - Vision blurred [Unknown]
